FAERS Safety Report 18937170 (Version 3)
Quarter: 2021Q2

REPORT INFORMATION
  Report Type: Report from Study
  Country: BR (occurrence: BR)
  Receive Date: 20210224
  Receipt Date: 20210524
  Transmission Date: 20210717
  Serious: Yes (Death, Other)
  Sender: FDA-Public Use
  Company Number: BR-TAKEDA-2021TUS011691

PATIENT
  Sex: Male

DRUGS (1)
  1. IDURSULFASE [Suspect]
     Active Substance: IDURSULFASE
     Indication: MUCOPOLYSACCHARIDOSIS II
     Dosage: UNK
     Route: 042
     Dates: start: 2005

REACTIONS (5)
  - Pneumonia [Unknown]
  - Product availability issue [Unknown]
  - Chest discomfort [Unknown]
  - Catarrh [Not Recovered/Not Resolved]
  - Lung disorder [Fatal]
